FAERS Safety Report 5491015-3 (Version None)
Quarter: 2007Q4

REPORT INFORMATION
  Report Type: 
  Country: None (occurrence: None)
  Receive Date: 20071019
  Receipt Date: 20071005
  Transmission Date: 20080405
  Serious: Yes (Death)
  Sender: FDA-Public Use
  Company Number: IT-GENENTECH-249678

PATIENT
  Sex: Male

DRUGS (3)
  1. AVASTIN [Suspect]
     Indication: COLON CANCER
     Dates: start: 20070625, end: 20071001
  2. FLUOROURACIL [Concomitant]
     Indication: DRUG USE FOR UNKNOWN INDICATION
     Dates: start: 20070626, end: 20071003
  3. CAMPTOSAR [Concomitant]
     Indication: DRUG USE FOR UNKNOWN INDICATION
     Dates: start: 20070625, end: 20071001

REACTIONS (3)
  - CARDIAC TAMPONADE [None]
  - CAROTID ANEURYSM RUPTURE [None]
  - PERICARDIAL HAEMORRHAGE [None]
